FAERS Safety Report 4609821-3 (Version None)
Quarter: 2005Q1

REPORT INFORMATION
  Report Type: 
  Country: None (occurrence: None)
  Receive Date: 20050316
  Receipt Date: 20050309
  Transmission Date: 20050727
  Serious: Yes (Other)
  Sender: FDA-Public Use
  Company Number: CA-JNJFOC-20050302959

PATIENT
  Sex: Female
  Weight: 77.11 kg

DRUGS (7)
  1. DURAGESIC-100 [Suspect]
     Route: 062
     Dates: start: 20030901
  2. DURAGESIC-100 [Suspect]
     Route: 062
     Dates: start: 20030901
  3. OXYCONTIN [Concomitant]
     Indication: PAIN
  4. SYNTHROID [Concomitant]
     Indication: HYPOTHYROIDISM
  5. ZANTAC [Concomitant]
     Indication: DRUG USE FOR UNKNOWN INDICATION
  6. NEXIUM [Concomitant]
     Indication: DRUG USE FOR UNKNOWN INDICATION
  7. NORVASC [Concomitant]
     Indication: HYPERTENSION

REACTIONS (5)
  - ATRIOVENTRICULAR BLOCK [None]
  - BRADYCARDIA [None]
  - DIZZINESS [None]
  - LOSS OF CONSCIOUSNESS [None]
  - SYNCOPE [None]
